FAERS Safety Report 17351182 (Version 1)
Quarter: 2020Q1

REPORT INFORMATION
  Report Type: Spontaneous
  Country: IT (occurrence: IT)
  Receive Date: 20200130
  Receipt Date: 20200130
  Transmission Date: 20200409
  Serious: Yes (Death)
  Sender: FDA-Public Use
  Company Number: IT-SUN PHARMACEUTICAL INDUSTRIES LTD-2019RR-235031

PATIENT
  Age: 56 Year
  Sex: Female
  Weight: 61 kg

DRUGS (3)
  1. TEMOZOLOMIDE SUN [Suspect]
     Active Substance: TEMOZOLOMIDE
     Indication: GLIOBLASTOMA
     Dosage: 125 MILLIGRAM, DAILY
     Route: 048
     Dates: start: 20191003, end: 20191108
  2. ONDANSETRON EG 8 MG COMPRESSE RIVESTITE CON FILM [Concomitant]
     Indication: PREMEDICATION
     Dosage: 8 MILLIGRAM, DAILY
     Route: 065
     Dates: start: 20191003
  3. LEVETIRACETAM. [Concomitant]
     Active Substance: LEVETIRACETAM
     Indication: GLIOBLASTOMA
     Dosage: 1000 MILLIGRAM, DAILY
     Route: 048
     Dates: start: 20190809, end: 20191108

REACTIONS (3)
  - Pancytopenia [Fatal]
  - Immune thrombocytopenic purpura [Fatal]
  - Haemolytic anaemia [Fatal]

NARRATIVE: CASE EVENT DATE: 20191029
